FAERS Safety Report 10516295 (Version 3)
Quarter: 2015Q1

REPORT INFORMATION
  Report Type: Spontaneous
  Country: US (occurrence: None)
  Receive Date: 20140929
  Receipt Date: 20150331
  Transmission Date: 20150720
  Serious: Yes (Other)
  Sender: FDA-Public Use
  Company Number: 1713747-2014-999156

PATIENT
  Age: 68 Year
  Sex: Female
  Weight: 50.8 kg

DRUGS (6)
  1. TUMS [Concomitant]
     Active Substance: CALCIUM CARBONATE
  2. LIBERTY CYCLER [Concomitant]
     Active Substance: DEVICE
  3. VENOFER [Concomitant]
     Active Substance: IRON SUCROSE
  4. DELFLEX [Suspect]
     Active Substance: CALCIUM CHLORIDE\DEXTROSE MONOHYDRATE\MAGNESIUM CHLORIDE\SODIUM CHLORIDE\SODIUM LACTATE
     Indication: PERITONEAL DIALYSIS
     Route: 033
  5. LIBERTY CYCLER SET [Concomitant]
     Active Substance: DEVICE
  6. PHOSLO [Concomitant]
     Active Substance: CALCIUM ACETATE

REACTIONS (7)
  - Abdominal pain [None]
  - Dialysis related complication [None]
  - Peritonitis [None]
  - Culture positive [None]
  - Laboratory test abnormal [None]
  - Peritoneal cloudy effluent [None]
  - Device issue [None]

NARRATIVE: CASE EVENT DATE: 20140826
